FAERS Safety Report 6160444-7 (Version None)
Quarter: 2009Q2

REPORT INFORMATION
  Report Type: 
  Country: None (occurrence: None)
  Receive Date: 20090420
  Receipt Date: 20090415
  Transmission Date: 20091009
  Serious: Yes (Hospitalization, Other)
  Sender: FDA-Public Use
  Company Number: US-JNJFOC-20090404422

PATIENT
  Sex: Female
  Weight: 102.06 kg

DRUGS (2)
  1. DURAGESIC-100 [Suspect]
     Indication: OSTEOPOROSIS
     Route: 062
  2. DURAGESIC-100 [Suspect]
     Indication: BACK PAIN
     Route: 062

REACTIONS (6)
  - APPLICATION SITE VESICLES [None]
  - ARTHRALGIA [None]
  - BLISTER [None]
  - CELLULITIS [None]
  - COMA [None]
  - OEDEMA PERIPHERAL [None]
